FAERS Safety Report 10103068 (Version 2)
Quarter: 2014Q2

REPORT INFORMATION
  Report Type: Other
  Country: US (occurrence: US)
  Receive Date: 20140424
  Receipt Date: 20140625
  Transmission Date: 20141212
  Serious: Yes (Hospitalization, Other)
  Sender: FDA-Public Use
  Company Number: US-GSKPPD-2014GSK000167

PATIENT
  Age: 53 Year
  Sex: Male

DRUGS (6)
  1. AVANDIA [Suspect]
     Indication: DIABETES MELLITUS
     Route: 048
     Dates: start: 20051202, end: 20070508
  2. AVANDAMET [Suspect]
     Indication: DIABETES MELLITUS
     Dosage: 2/500MG
     Dates: start: 20070214, end: 20070323
  3. PLAVIX [Concomitant]
  4. TOPROL [Concomitant]
  5. LIPITOR [Concomitant]
  6. ASPIRIN [Concomitant]

REACTIONS (1)
  - Myocardial infarction [None]
